FAERS Safety Report 7905953-2 (Version None)
Quarter: 2011Q4

REPORT INFORMATION
  Report Type: 
  Country: None (occurrence: None)
  Receive Date: 20111110
  Receipt Date: 20111102
  Transmission Date: 20120403
  Serious: Yes (Disabling)
  Sender: FDA-Public Use
  Company Number: PHHY2011GB89553

PATIENT

DRUGS (5)
  1. AMLODIPINE [Concomitant]
  2. CALCIUM W/VITAMIN D NOS [Concomitant]
  3. EPROSARTAN [Concomitant]
  4. FLUOXETINE HCL [Concomitant]
  5. ALENDRONATE SODIUM [Suspect]
     Indication: OSTEOPOROSIS
     Dosage: 70 MG, UNK
     Route: 048
     Dates: start: 20110117

REACTIONS (1)
  - MICTURITION URGENCY [None]
